FAERS Safety Report 14101053 (Version 1)
Quarter: 2017Q4

REPORT INFORMATION
  Report Type: Spontaneous
  Country: US (occurrence: None)
  Receive Date: 20171017
  Receipt Date: 20171017
  Transmission Date: 20180321
  Serious: Yes (Hospitalization)
  Sender: FDA-Public Use
  Company Number: None

PATIENT
  Age: 78 Year
  Sex: Male

DRUGS (6)
  1. FAMOTIDINE. [Concomitant]
     Active Substance: FAMOTIDINE
  2. REVLIMID [Suspect]
     Active Substance: LENALIDOMIDE
     Indication: PLASMA CELL MYELOMA
     Dosage: 15MG DAILY FOR 21 DAYS ORAL
     Route: 048
     Dates: start: 20170607, end: 201708
  3. ASPIRIN. [Concomitant]
     Active Substance: ASPIRIN
  4. DEXAMETHASONE. [Concomitant]
     Active Substance: DEXAMETHASONE
  5. ATORVASTATIN [Concomitant]
     Active Substance: ATORVASTATIN
  6. LENALIDOMIDE [Concomitant]
     Active Substance: LENALIDOMIDE

REACTIONS (9)
  - Malaise [None]
  - Septic shock [None]
  - Dyspnoea [None]
  - Therapy cessation [None]
  - Pneumonia [None]
  - Pyrexia [None]
  - Renal failure [None]
  - Productive cough [None]
  - Pancytopenia [None]

NARRATIVE: CASE EVENT DATE: 20170820
